FAERS Safety Report 4358732-X (Version None)
Quarter: 2004Q2

REPORT INFORMATION
  Report Type: 
  Country: None (occurrence: None)
  Receive Date: 20040514
  Receipt Date: 20040514
  Transmission Date: 20050107
  Serious: No
  Sender: FDA-Public Use
  Company Number: None

PATIENT
  Sex: Female

DRUGS (2)
  1. PEG-INTRON [Suspect]
     Indication: HEPATITIS C
     Dosage: 96 MCG QW SQ
     Route: 058
  2. REBETOL [Suspect]
     Dosage: 200 MG X 3 IN AM AND 2 IN PM

REACTIONS (3)
  - BLINDNESS TRANSIENT [None]
  - RETINAL HAEMORRHAGE [None]
  - VISUAL DISTURBANCE [None]
